FAERS Safety Report 7288739-4 (Version None)
Quarter: 2011Q1

REPORT INFORMATION
  Report Type: 
  Country: None (occurrence: None)
  Receive Date: 20110211
  Receipt Date: 20110207
  Transmission Date: 20110831
  Serious: Yes (Life-Threatening, Hospitalization)
  Sender: FDA-Public Use
  Company Number: PHHY2011US10242

PATIENT
  Sex: Female

DRUGS (4)
  1. LITHIUM CARBONATE [Interacting]
     Indication: BIPOLAR DISORDER
     Dosage: UNK
     Route: 048
     Dates: end: 20101201
  2. FANAPT [Suspect]
     Dosage: UNK
     Dates: start: 20101203
  3. CELEBREX [Interacting]
     Dosage: UNK
     Route: 048
     Dates: end: 20101201
  4. ATACAND [Suspect]
     Dosage: UNK
     Route: 048
     Dates: end: 20101201

REACTIONS (1)
  - TOXICITY TO VARIOUS AGENTS [None]
